FAERS Safety Report 6491756-5 (Version None)
Quarter: 2009Q4

REPORT INFORMATION
  Report Type: 
  Country: None (occurrence: None)
  Receive Date: 20091210
  Receipt Date: 20091130
  Transmission Date: 20100525
  Serious: Yes (Hospitalization)
  Sender: FDA-Public Use
  Company Number: 2009029337

PATIENT
  Age: 50 Year
  Sex: Female
  Weight: 59 kg

DRUGS (6)
  1. PROVIGIL [Suspect]
     Dosage: ORAL
  2. NOVANTRONE [Suspect]
     Dosage: (8-10 MG/M2 EVERY 2-3)
     Dates: start: 20050713, end: 20070112
  3. ZITHROMAX [Suspect]
     Indication: RESPIRATORY TRACT INFECTION
     Dates: start: 20060101
  4. METHYLPREDNISOLONE [Suspect]
  5. XANAX [Suspect]
  6. VITAMIN B12 [Suspect]

REACTIONS (4)
  - CONDITION AGGRAVATED [None]
  - CROHN'S DISEASE [None]
  - MEMORY IMPAIRMENT [None]
  - RESPIRATORY TRACT INFECTION [None]
